FAERS Safety Report 8966985 (Version 3)
Quarter: 2012Q4

REPORT INFORMATION
  Report Type: 
  Country: JP (occurrence: JP)
  Receive Date: 20121217
  Receipt Date: 20121228
  Transmission Date: 20130627
  Serious: Yes (Other)
  Sender: FDA-Public Use
  Company Number: JP-ELI_LILLY_AND_COMPANY-JP201212000586

PATIENT
  Age: 71 Year
  Sex: Female
  Weight: 59.4 kg

DRUGS (6)
  1. CYMBALTA [Suspect]
     Indication: DEPRESSION
     Dosage: 20 mg, qd
     Route: 048
     Dates: start: 20120703, end: 20120723
  2. CYMBALTA [Suspect]
     Dosage: 20 mg, bid
     Route: 048
     Dates: start: 20120724, end: 20121126
  3. LYRICA [Concomitant]
  4. LIPITOR [Concomitant]
     Indication: DYSLIPIDAEMIA
     Dosage: 10 mg, qd
     Route: 048
     Dates: start: 20120624, end: 20121126
  5. ADALAT [Concomitant]
     Indication: HYPERTENSION
     Dosage: 20 mg, qd
     Route: 048
     Dates: start: 20120624
  6. THYRADIN S [Concomitant]
     Indication: HYPOTHYROIDISM
     Dosage: 125 ug, qd
     Route: 048
     Dates: start: 20120624

REACTIONS (1)
  - Hyperkalaemia [Recovering/Resolving]
